FAERS Safety Report 5141103-6 (Version None)
Quarter: 2006Q4

REPORT INFORMATION
  Report Type: 
  Country: None (occurrence: None)
  Receive Date: 20061026
  Receipt Date: 20061020
  Transmission Date: 20070319
  Serious: Yes (Other)
  Sender: FDA-Public Use
  Company Number: GXKR2006GB06619

PATIENT
  Age: 53 Year
  Sex: Female

DRUGS (2)
  1. GABAPENTIN [Suspect]
     Indication: NERVE COMPRESSION
     Dosage: 300 MG, TID, ORAL
     Route: 048
     Dates: start: 20060601
  2. LEVOTHYROXINE SODIUM [Concomitant]

REACTIONS (2)
  - SLEEP APNOEA SYNDROME [None]
  - THERAPEUTIC RESPONSE UNEXPECTED [None]
